FAERS Safety Report 8846606 (Version 1)
Quarter: 2012Q4

REPORT INFORMATION
  Report Type: 
  Country: IT (occurrence: IT)
  Receive Date: 20121017
  Receipt Date: 20121017
  Transmission Date: 20130627
  Serious: Yes (Hospitalization)
  Sender: FDA-Public Use
  Company Number: PHHY2012IT090433

PATIENT
  Age: 63 Year
  Sex: Female

DRUGS (5)
  1. RISPERIDONE [Suspect]
     Route: 048
     Dates: start: 20120930, end: 20121001
  2. DEPAKIN CHRONO [Concomitant]
     Route: 048
  3. EN [Concomitant]
  4. KCL-RETARD [Concomitant]
     Route: 048
  5. LEVOPRAID [Concomitant]
     Route: 048

REACTIONS (2)
  - Vertigo [Unknown]
  - Asthenia [Unknown]
